FAERS Safety Report 10970070 (Version 1)
Quarter: 2015Q1

REPORT INFORMATION
  Report Type: Spontaneous
  Country: EG (occurrence: EG)
  Receive Date: 20150331
  Receipt Date: 20150331
  Transmission Date: 20150721
  Serious: Yes (Death)
  Sender: FDA-Public Use
  Company Number: EG-NOVOPROD-443086

PATIENT
  Age: 69 Year
  Sex: Female
  Weight: 120 kg

DRUGS (1)
  1. MIXTARD 30 HM PENFILL [Suspect]
     Active Substance: INSULIN HUMAN
     Indication: DIABETES MELLITUS
     Dosage: 50 U, QD (36 UNITS AT MORNING , 14 UNITS IN THE EVENING)
     Route: 065
     Dates: start: 201411, end: 20141201

REACTIONS (2)
  - Renal failure [Fatal]
  - Hepatic failure [Fatal]
